FAERS Safety Report 7274090-5 (Version None)
Quarter: 2011Q1

REPORT INFORMATION
  Report Type: 
  Country: None (occurrence: None)
  Receive Date: 20110204
  Receipt Date: 20110124
  Transmission Date: 20110831
  Serious: Yes (Other)
  Sender: FDA-Public Use
  Company Number: US-BIOGENIDEC-2011BI000293

PATIENT
  Age: 73 Year
  Sex: Female
  Weight: 65 kg

DRUGS (2)
  1. NEXIUM [Concomitant]
     Indication: HIATUS HERNIA
  2. TYSABRI [Suspect]
     Indication: MULTIPLE SCLEROSIS
     Route: 042
     Dates: start: 20080730, end: 20101222

REACTIONS (2)
  - INCISION SITE PAIN [None]
  - BREAST CANCER STAGE II [None]
